FAERS Safety Report 25092080 (Version 1)
Quarter: 2025Q1

REPORT INFORMATION
  Report Type: Spontaneous
  Country: US (occurrence: US)
  Receive Date: 20250319
  Receipt Date: 20250319
  Transmission Date: 20250408
  Serious: No
  Sender: SANDOZ
  Company Number: US-SANDOZ-SDZ2025US016623

PATIENT
  Sex: Female

DRUGS (1)
  1. ALBUTEROL SULFATE [Suspect]
     Active Substance: ALBUTEROL SULFATE
     Indication: Asthma
     Dosage: SHE TAKES 1-2 PUMPS, DURING POLLEN SEASON SHE MIGHT TAKE 2-3 PUMPS
     Route: 048

REACTIONS (2)
  - Poor quality device used [Unknown]
  - Device defective [Unknown]
